FAERS Safety Report 10543202 (Version 1)
Quarter: 2014Q4

REPORT INFORMATION
  Report Type: Spontaneous
  Country: FR (occurrence: FR)
  Receive Date: 20141027
  Receipt Date: 20141027
  Transmission Date: 20150529
  Serious: Yes (Hospitalization)
  Sender: FDA-Public Use
  Company Number: FR-ELI_LILLY_AND_COMPANY-FR201410004470

PATIENT
  Age: 51 Year
  Sex: Female

DRUGS (13)
  1. LYRICA [Concomitant]
     Active Substance: PREGABALIN
  2. DIFFU-K [Concomitant]
     Active Substance: POTASSIUM CHLORIDE
  3. TOPALGIC LP [Concomitant]
     Active Substance: TRAMADOL
  4. PARACETAMOL [Concomitant]
     Active Substance: ACETAMINOPHEN
  5. GEMZAR [Suspect]
     Active Substance: GEMCITABINE HYDROCHLORIDE
     Dosage: 1400 MG, UNKNOWN
     Route: 042
     Dates: start: 20140203
  6. CARBOPLATINE [Suspect]
     Active Substance: CARBOPLATIN
     Dosage: 400 MG, UNKNOWN
     Dates: start: 20140203
  7. CARBOPLATINE [Suspect]
     Active Substance: CARBOPLATIN
     Dosage: 544 MG, UNKNOWN
     Dates: start: 20140108
  8. INNOHEP [Concomitant]
     Active Substance: TINZAPARIN SODIUM
  9. LAROXYL [Concomitant]
     Active Substance: AMITRIPTYLINE
  10. GEMZAR [Suspect]
     Active Substance: GEMCITABINE HYDROCHLORIDE
     Indication: OVARIAN EPITHELIAL CANCER
     Dosage: 1866 MG, UNKNOWN
     Route: 042
     Dates: start: 20140108
  11. CARBOPLATINE [Suspect]
     Active Substance: CARBOPLATIN
     Indication: OVARIAN EPITHELIAL CANCER
     Dosage: UNK
     Dates: start: 2007
  12. PANTOPRAZOLE [Concomitant]
     Active Substance: PANTOPRAZOLE SODIUM
  13. SPASFON                            /00765801/ [Concomitant]
     Active Substance: PHLOROGLUCINOL\1,3,5-TRIMETHOXYBENZENE

REACTIONS (5)
  - Pulmonary embolism [Unknown]
  - Ileus [Unknown]
  - Deep vein thrombosis [Unknown]
  - Peripheral motor neuropathy [Not Recovered/Not Resolved]
  - Neuropathy peripheral [Not Recovered/Not Resolved]

NARRATIVE: CASE EVENT DATE: 201402
